FAERS Safety Report 23661679 (Version 3)
Quarter: 2025Q4

REPORT INFORMATION
  Report Type: Spontaneous
  Country: US (occurrence: US)
  Receive Date: 20240322
  Receipt Date: 20251224
  Transmission Date: 20260117
  Serious: No
  Sender: KYOWA
  Company Number: US-KYOWAKIRIN-2024KK005723

PATIENT

DRUGS (6)
  1. CRYSVITA [Suspect]
     Active Substance: BUROSUMAB-TWZA
     Indication: Hereditary hypophosphataemic rickets
     Dosage: 30 MG, 1X/2 WEEKS
     Route: 058
  2. CRYSVITA [Suspect]
     Active Substance: BUROSUMAB-TWZA
     Dosage: 30 MG, 1X/2 WEEKS
     Route: 058
  3. CRYSVITA [Suspect]
     Active Substance: BUROSUMAB-TWZA
     Dosage: INJECT 80 MG (2 X 30MG AND 1 X 20MG) UNDER THE SKIN EVERY 14 DAYS. TO BE ADMINISTERED BY HEALTHCARE
     Route: 058
  4. CRYSVITA [Suspect]
     Active Substance: BUROSUMAB-TWZA
     Dosage: 80 MG (2 X 30MG AND 1 X 20MG) UNDER THE SKIN
     Route: 058
  5. CRYSVITA [Suspect]
     Active Substance: BUROSUMAB-TWZA
     Indication: Hereditary hypophosphataemic rickets
     Dosage: INJECT 80 MG (2 X 30MG AND 1 X 20MG) UNDER THE SKIN EVERY 14 DAYS. TO BE ADMINISTERED BY HEALTHCARE
     Route: 058
  6. CRYSVITA [Suspect]
     Active Substance: BUROSUMAB-TWZA
     Dosage: 80 MG (2 X 30MG AND 1 X 20MG) UNDER THE SKIN
     Route: 058

REACTIONS (5)
  - Laboratory test abnormal [Unknown]
  - Anxiety [Not Recovered/Not Resolved]
  - Weight decreased [Unknown]
  - Nausea [Unknown]
  - Contraindicated product prescribed [Unknown]
